FAERS Safety Report 24092857 (Version 2)
Quarter: 2024Q3

REPORT INFORMATION
  Report Type: Spontaneous
  Country: JP (occurrence: JP)
  Receive Date: 20240715
  Receipt Date: 20240819
  Transmission Date: 20241017
  Serious: Yes (Hospitalization, Other)
  Sender: MERCK
  Company Number: JP-MSD-M2024-26595

PATIENT
  Age: 8 Decade
  Sex: Female

DRUGS (1)
  1. KEYTRUDA [Suspect]
     Active Substance: PEMBROLIZUMAB
     Indication: Triple negative breast cancer
     Dosage: 200 MILLIGRAM, Q3W
     Route: 041

REACTIONS (1)
  - Hepatitis fulminant [Recovering/Resolving]

NARRATIVE: CASE EVENT DATE: 20240101
